FAERS Safety Report 18446487 (Version 3)
Quarter: 2020Q4

REPORT INFORMATION
  Report Type: Spontaneous
  Country: GB (occurrence: GB)
  Receive Date: 20201030
  Receipt Date: 20201127
  Transmission Date: 20210114
  Serious: Yes (Hospitalization, Other)
  Sender: FDA-Public Use
  Company Number: GB-ALLERGAN-2041275US

PATIENT
  Sex: Male

DRUGS (1)
  1. BOTOX [Suspect]
     Active Substance: ONABOTULINUMTOXINA
     Indication: MUSCLE SPASTICITY
     Dosage: 400 UNITS, UNK

REACTIONS (7)
  - Blood lactate dehydrogenase increased [Unknown]
  - Injection site discolouration [Unknown]
  - Generalised tonic-clonic seizure [Recovered/Resolved]
  - Pneumonia [Unknown]
  - Injection site bruising [Unknown]
  - Suspected COVID-19 [Unknown]
  - Lower respiratory tract infection [Recovered/Resolved]
